FAERS Safety Report 17219679 (Version 1)
Quarter: 2019Q4

REPORT INFORMATION
  Report Type: Spontaneous
  Country: IT (occurrence: IT)
  Receive Date: 20191231
  Receipt Date: 20191231
  Transmission Date: 20200122
  Serious: Yes (Other)
  Sender: FDA-Public Use
  Company Number: IT-MYLANLABS-2019M1131080

PATIENT
  Age: 78 Year
  Sex: Female

DRUGS (1)
  1. INDAPAMIDE. [Suspect]
     Active Substance: INDAPAMIDE
     Indication: PRODUCT USED FOR UNKNOWN INDICATION
     Dosage: UNK
     Dates: start: 20190719, end: 20190723

REACTIONS (3)
  - Overdose [Unknown]
  - Hypokalaemia [Recovering/Resolving]
  - Hyponatraemic syndrome [Recovering/Resolving]

NARRATIVE: CASE EVENT DATE: 20190719
